FAERS Safety Report 7783166-5 (Version None)
Quarter: 2011Q3

REPORT INFORMATION
  Report Type: 
  Country: None (occurrence: None)
  Receive Date: 20110928
  Receipt Date: 20110921
  Transmission Date: 20111222
  Serious: Yes (Hospitalization)
  Sender: FDA-Public Use
  Company Number: US-AMGEN-USACT2011048894

PATIENT
  Age: 60 Year
  Sex: Male
  Weight: 85.5 kg

DRUGS (23)
  1. ALBUTEROL [Concomitant]
     Indication: ASTHMA
     Dosage: 90 MUG, UNK
     Route: 055
     Dates: start: 20090928
  2. TRAMADOL HCL [Concomitant]
     Indication: PAIN
     Dosage: 50 MG, UNK
     Route: 048
     Dates: start: 20110217
  3. SILVER SULFADIAZINE [Concomitant]
     Indication: INFECTION
     Dosage: UNK
     Route: 061
     Dates: start: 20110712, end: 20110811
  4. ASPIRIN [Concomitant]
     Dosage: 81 MG, UNK
     Route: 048
     Dates: start: 20110610
  5. CLOPIDOGREL BISULFATE [Concomitant]
     Route: 048
     Dates: start: 20110610
  6. KETOROLAC TROMETHAMINE [Concomitant]
     Indication: EYE PAIN
     Dosage: UNK
     Route: 047
     Dates: start: 20110322
  7. HYDROCORTISONE [Concomitant]
     Indication: RASH
     Dosage: UNK
     Route: 061
     Dates: start: 20110401
  8. NEPHROCAPS [Concomitant]
     Indication: RENAL FAILURE CHRONIC
     Dosage: UNK
     Route: 048
     Dates: start: 20020328
  9. DIPHENHYDRAMINE HCL [Concomitant]
     Dosage: 50 MG, UNK
     Route: 048
     Dates: start: 20040114
  10. IBUPROFEN [Concomitant]
     Indication: PAIN
     Dosage: 800 MG, UNK
     Route: 048
     Dates: start: 20020607, end: 20110724
  11. LEVITRA [Concomitant]
     Indication: ERECTILE DYSFUNCTION
     Dosage: 20 MG, UNK
     Route: 048
     Dates: start: 20110606
  12. PANCRELIPASE [Concomitant]
     Indication: PANCREATIC INSUFFICIENCY
     Dosage: UNK
     Route: 048
     Dates: start: 20110128
  13. CALCIUM ACETATE [Concomitant]
     Dosage: 1334 MG, UNK
     Route: 048
     Dates: start: 20110603
  14. GABAPENTIN [Concomitant]
     Indication: PAIN
     Dosage: 100 MG, UNK
     Route: 048
     Dates: start: 20110418
  15. LOPERAMIDE HCL [Concomitant]
     Indication: DIARRHOEA
     Dosage: 2 MG, UNK
     Route: 048
     Dates: start: 20110309
  16. CREON [Concomitant]
     Indication: PANCREATIC INSUFFICIENCY
     Dosage: UNK
     Route: 048
     Dates: start: 20101209
  17. CINACALCET HYDROCHLORIDE [Suspect]
     Indication: HYPERPARATHYROIDISM SECONDARY
     Dosage: 30 MG, UNK
  18. OMEPRAZOLE [Concomitant]
     Dosage: 20 MG, UNK
     Route: 048
     Dates: start: 20100924
  19. ACETAMINOPHEN [Concomitant]
     Indication: PAIN
     Dosage: 325 MG, UNK
     Route: 048
     Dates: start: 20110523
  20. ACETAMINOPHEN [Concomitant]
     Indication: PYREXIA
  21. PRAVASTATIN [Concomitant]
     Indication: BLOOD CHOLESTEROL INCREASED
     Dosage: 20 MG, UNK
     Route: 048
     Dates: start: 20080415
  22. DIPHENOXYLATE HCL + ATROPINE SULFATE [Concomitant]
     Indication: DIARRHOEA
     Dosage: 2.525 MG, UNK
     Route: 048
     Dates: start: 20110513
  23. TRIAMCINOLONE ACETATE [Concomitant]
     Indication: RASH
     Dosage: UNK
     Route: 061
     Dates: start: 20110422

REACTIONS (1)
  - HYPOPHOSPHATAEMIA [None]
